FAERS Safety Report 9302251 (Version 5)
Quarter: 2013Q4

REPORT INFORMATION
  Report Type: Spontaneous
  Country: CA (occurrence: CA)
  Receive Date: 20130522
  Receipt Date: 20131113
  Transmission Date: 20140711
  Serious: Yes (Hospitalization)
  Sender: FDA-Public Use
  Company Number: CA-AMGEN-CANSP2013035651

PATIENT
  Age: 54 Year
  Sex: Female

DRUGS (8)
  1. ENBREL [Suspect]
     Indication: RHEUMATOID ARTHRITIS
     Dosage: 50 MG, QWK
     Route: 058
     Dates: start: 20111115
  2. TOPAMAX [Concomitant]
     Dosage: UNK
  3. METHOTREXATE [Concomitant]
     Indication: RHEUMATOID ARTHRITIS
     Dosage: 20 MG, QWK
     Route: 048
     Dates: start: 20090529
  4. INDOMETHACIN                       /00003801/ [Concomitant]
     Indication: RHEUMATOID ARTHRITIS
     Dosage: 50 MG, TID LONG STANDING
     Route: 048
  5. OXYCODONE [Concomitant]
     Dosage: UNK
  6. ARTHROTEC [Concomitant]
     Dosage: UNK
  7. PERCOCET                           /00867901/ [Concomitant]
     Indication: PAIN
     Dosage: UNK,
     Route: 048
  8. TYLENOL                            /00020001/ [Concomitant]
     Indication: PAIN
     Dosage: UNK,
     Route: 048

REACTIONS (5)
  - Petit mal epilepsy [Unknown]
  - Convulsion [Not Recovered/Not Resolved]
  - Headache [Unknown]
  - Fatigue [Unknown]
  - Movement disorder [Unknown]
